FAERS Safety Report 22339404 (Version 1)
Quarter: 2023Q2

REPORT INFORMATION
  Report Type: Spontaneous
  Country: ES (occurrence: ES)
  Receive Date: 20230518
  Receipt Date: 20230518
  Transmission Date: 20230722
  Serious: Yes (Other)
  Sender: FDA-Public Use
  Company Number: None

PATIENT
  Age: 72 Year
  Sex: Female

DRUGS (9)
  1. TOVIAZ [Suspect]
     Active Substance: FESOTERODINE FUMARATE
     Indication: Hypertonic bladder
     Dosage: 8 MG, DAILY (EVERY 24H)
     Dates: start: 20221213, end: 20230504
  2. FELODIPINE [Suspect]
     Active Substance: FELODIPINE
     Indication: Hypertension
     Dosage: 5 MG, 1X/DAY (AT BREAKFAST)
     Route: 048
     Dates: start: 20230404
  3. CANDESARTAN CINFA [Concomitant]
     Indication: Essential hypertension
     Dosage: 16 MG, 1X/DAY (BREAKFAST)
     Route: 048
     Dates: start: 20190717
  4. PARACETAMOL KERN PHARMA [Concomitant]
     Indication: Pain
     Dosage: 1 G, 3X/DAY (EVERY 8 HOURS)
     Route: 048
     Dates: start: 20191015
  5. TOUJEO [Concomitant]
     Active Substance: INSULIN GLARGINE
     Indication: Type 2 diabetes mellitus
     Dosage: 60 IU, DAILY (EVERY 24H)
     Route: 058
     Dates: start: 20190928
  6. ALBUTEROL SULFATE [Concomitant]
     Active Substance: ALBUTEROL SULFATE
     Indication: Bronchitis chronic
     Dosage: 200 UG, 2X/DAY (BREAKFAST AND DINNER)
     Dates: start: 20081215
  7. SIMVASTATIN [Concomitant]
     Active Substance: SIMVASTATIN
     Indication: Type IIa hyperlipidaemia
     Dosage: 20 MG, 1X/DAY (AT DINNER)
     Route: 048
     Dates: start: 20111013
  8. XIGDUO XR [Concomitant]
     Active Substance: DAPAGLIFLOZIN PROPANEDIOL\METFORMIN HYDROCHLORIDE
     Indication: Type 2 diabetes mellitus
     Dosage: 1 TABLET EVERY 12H
     Route: 048
     Dates: start: 20210729
  9. ASPIRIN [Concomitant]
     Active Substance: ASPIRIN
     Indication: Diabetic neuropathy
     Dosage: 100 MG, 1X/DAY (AT BREAKFAST)
     Route: 048
     Dates: start: 20140212

REACTIONS (3)
  - Anuria [Recovered/Resolved]
  - Eyelid oedema [Recovered/Resolved]
  - Peripheral swelling [Recovered/Resolved]

NARRATIVE: CASE EVENT DATE: 20230504
